FAERS Safety Report 18418781 (Version 11)
Quarter: 2022Q4

REPORT INFORMATION
  Report Type: Report from Study
  Country: US (occurrence: US)
  Receive Date: 20201023
  Receipt Date: 20221006
  Transmission Date: 20230113
  Serious: No
  Sender: FDA-Public Use
  Company Number: US-ACADIA PHARMACEUTICALS INC.-ACA-2020-PIM-003158

PATIENT
  Age: 73 Year
  Sex: Female

DRUGS (13)
  1. NUPLAZID [Suspect]
     Active Substance: PIMAVANSERIN TARTRATE
     Indication: Parkinson^s disease
     Dosage: 34 MILLIGRAM, QD
     Route: 048
  2. DUOPA [Concomitant]
     Active Substance: CARBIDOPA\LEVODOPA
     Dosage: 12 HRS PER DAY
  3. STALEVO [Concomitant]
     Active Substance: CARBIDOPA\ENTACAPONE\LEVODOPA
  4. ALEVE [Concomitant]
     Active Substance: NAPROXEN SODIUM
     Dosage: 220 MILLIGRAM
  5. CETIRIZINE [Concomitant]
     Active Substance: CETIRIZINE HYDROCHLORIDE
  6. COENZYME Q10 [Concomitant]
     Active Substance: DIETARY SUPPLEMENT\UBIDECARENONE
     Dosage: 100 MILLIGRAM
  7. PRAVASTATIN [Concomitant]
     Active Substance: PRAVASTATIN
     Dosage: 4.6MG/24HR PATCH TD24
  8. VITAMINS [Concomitant]
     Active Substance: VITAMINS
     Indication: Vitamin supplementation
  9. PRAVASTATIN SODIUM [Concomitant]
     Active Substance: PRAVASTATIN SODIUM
     Dosage: 20 MILLIGRAM
  10. RIVASTIGMINE [Concomitant]
     Active Substance: RIVASTIGMINE
  11. CANNABIDIOL\HERBALS [Concomitant]
     Active Substance: CANNABIDIOL\HERBALS
  12. MUCINEX DM [Concomitant]
     Active Substance: DEXTROMETHORPHAN HYDROBROMIDE\GUAIFENESIN
  13. CVS COENZYME Q 10 [Concomitant]

REACTIONS (13)
  - Stoma site discharge [Not Recovered/Not Resolved]
  - Complication associated with device [Unknown]
  - Productive cough [Unknown]
  - Complication associated with device [Unknown]
  - Complication associated with device [Unknown]
  - Complication associated with device [Unknown]
  - Complication associated with device [Unknown]
  - Stoma site irritation [Unknown]
  - Complication associated with device [Unknown]
  - Complication associated with device [Unknown]
  - Complication associated with device [Not Recovered/Not Resolved]
  - Confusional state [Unknown]
  - Hallucination [Not Recovered/Not Resolved]

NARRATIVE: CASE EVENT DATE: 20220408
